FAERS Safety Report 5398765-8 (Version None)
Quarter: 2007Q3

REPORT INFORMATION
  Report Type: 
  Country: None (occurrence: None)
  Receive Date: 20070726
  Receipt Date: 20070507
  Transmission Date: 20080115
  Serious: No
  Sender: FDA-Public Use
  Company Number: US-AMGEN-US223484

PATIENT
  Sex: Male

DRUGS (10)
  1. ARANESP [Suspect]
     Indication: DIALYSIS
     Route: 065
     Dates: start: 20060101
  2. EPOGEN [Suspect]
     Indication: DIALYSIS
     Route: 065
  3. SENSIPAR [Concomitant]
     Indication: DRUG USE FOR UNKNOWN INDICATION
  4. RENAGEL [Concomitant]
     Route: 065
  5. METOPROLOL SUCCINATE [Concomitant]
     Route: 065
  6. CLONIDINE [Concomitant]
     Route: 065
  7. NIFEDIPINE [Concomitant]
     Route: 065
  8. PROCARDIA [Concomitant]
     Route: 065
  9. NEXIUM [Concomitant]
     Route: 065
  10. LIPITOR [Concomitant]
     Route: 065

REACTIONS (2)
  - BLOOD PRESSURE INCREASED [None]
  - THERAPEUTIC RESPONSE DECREASED [None]
